FAERS Safety Report 26185516 (Version 1)
Quarter: 2025Q4

REPORT INFORMATION
  Report Type: Spontaneous
  Country: US (occurrence: US)
  Receive Date: 20251222
  Receipt Date: 20251222
  Transmission Date: 20260117
  Serious: Yes (Life-Threatening)
  Sender: CSL BEHRING
  Company Number: US-BEH-2025229752

PATIENT
  Age: 45 Year
  Sex: Male

DRUGS (2)
  1. HUMAN IMMUNOGLOBULIN G [Suspect]
     Active Substance: HUMAN IMMUNOGLOBULIN G
     Dosage: UNK
     Route: 042
  2. CYCLOSPORINE [Suspect]
     Active Substance: CYCLOSPORINE
     Route: 065

REACTIONS (3)
  - Capillary leak syndrome [Unknown]
  - Cardiac arrest [Unknown]
  - Hypovolaemic shock [Unknown]
